FAERS Safety Report 8969865 (Version 1)
Quarter: 2012Q4

REPORT INFORMATION
  Report Type: 
  Country: US (occurrence: US)
  Receive Date: 20121218
  Receipt Date: 20121218
  Transmission Date: 20130627
  Serious: No
  Sender: FDA-Public Use
  Company Number: US-BRISTOL-MYERS SQUIBB COMPANY-16544934

PATIENT

DRUGS (1)
  1. ABILIFY [Suspect]
     Dosage: 1DF=5 mg or 10 mg

REACTIONS (1)
  - Weight increased [Unknown]
